FAERS Safety Report 18028848 (Version 3)
Quarter: 2020Q3

REPORT INFORMATION
  Report Type: Report from Study
  Country: CA (occurrence: CA)
  Receive Date: 20200716
  Receipt Date: 20200805
  Transmission Date: 20201103
  Serious: Yes (Hospitalization, Other)
  Sender: FDA-Public Use
  Company Number: CA-ELI_LILLY_AND_COMPANY-CA202001013495

PATIENT
  Sex: Female

DRUGS (3)
  1. VERZENIO [Suspect]
     Active Substance: ABEMACICLIB
     Dosage: 150 MG, BID
     Route: 048
  2. IMODIUM [Suspect]
     Active Substance: LOPERAMIDE HYDROCHLORIDE
     Indication: DIARRHOEA
     Dosage: UNK UNK, UNKNOWN
     Route: 065
  3. VERZENIO [Suspect]
     Active Substance: ABEMACICLIB
     Indication: PRODUCT USED FOR UNKNOWN INDICATION
     Dosage: 100 MG, BID
     Route: 048
     Dates: start: 20191213

REACTIONS (22)
  - Headache [Unknown]
  - Vomiting [Recovering/Resolving]
  - Weight decreased [Unknown]
  - Stomatitis [Not Recovered/Not Resolved]
  - Diarrhoea [Recovering/Resolving]
  - Pruritus [Recovering/Resolving]
  - Abdominal pain upper [Unknown]
  - Epistaxis [Unknown]
  - Renal impairment [Recovering/Resolving]
  - Rash pruritic [Recovering/Resolving]
  - Blood sodium decreased [Unknown]
  - Illness [Recovering/Resolving]
  - Nausea [Recovering/Resolving]
  - Muscular weakness [Unknown]
  - Withdrawal syndrome [Unknown]
  - Nasal dryness [Not Recovered/Not Resolved]
  - Fatigue [Unknown]
  - Decreased appetite [Unknown]
  - Malignant neoplasm progression [Recovering/Resolving]
  - Abdominal pain upper [Not Recovered/Not Resolved]
  - Drug ineffective [Unknown]
  - Rash vesicular [Recovering/Resolving]
